FAERS Safety Report 4522735-2 (Version None)
Quarter: 2004Q4

REPORT INFORMATION
  Report Type: 
  Country: None (occurrence: None)
  Receive Date: 20041207
  Receipt Date: 20041129
  Transmission Date: 20050328
  Serious: Yes (Hospitalization)
  Sender: FDA-Public Use
  Company Number: ERD2004A00041

PATIENT
  Age: 75 Year
  Sex: Male

DRUGS (10)
  1. PIOGLITAZONE HYDROCHLORIDE (PIOGLITAZONE HYDROCHLORIDE) [Suspect]
     Indication: DIABETES MELLITUS
     Dosage: BLIND, ORAL
     Route: 048
     Dates: start: 20020118, end: 20040701
  2. GAVISCON [Suspect]
  3. LOGIMAX (MODILOC) [Concomitant]
  4. COVERSYL (-ERINDORIL) [Concomitant]
  5. LASIX [Concomitant]
  6. PLAVIX [Concomitant]
  7. ATORVASTATIN CALCIUM [Concomitant]
  8. OMEPRAZOLE [Concomitant]
  9. XATRAL (ALFUZOSIN) [Concomitant]
  10. ZYLORIC (ALLOPURINOL) [Concomitant]

REACTIONS (2)
  - ANGINA PECTORIS [None]
  - MYOCARDIAL ISCHAEMIA [None]
